FAERS Safety Report 11873218 (Version 1)
Quarter: 2015Q4

REPORT INFORMATION
  Report Type: Spontaneous
  Country: US (occurrence: US)
  Receive Date: 20151228
  Receipt Date: 20151228
  Transmission Date: 20160305
  Serious: Yes (Other)
  Sender: FDA-Public Use
  Company Number: PHHY2015US168652

PATIENT
  Age: 16 Year
  Sex: Male

DRUGS (1)
  1. METHOTREXATE [Suspect]
     Active Substance: METHOTREXATE
     Indication: SCLERITIS
     Dosage: 15 MG, QD
     Route: 065

REACTIONS (1)
  - Gastrointestinal disorder [Unknown]
